FAERS Safety Report 11908083 (Version 1)
Quarter: 2016Q1

REPORT INFORMATION
  Report Type: Spontaneous
  Country: GB (occurrence: GB)
  Receive Date: 20160111
  Receipt Date: 20160111
  Transmission Date: 20160526
  Serious: Yes (Hospitalization)
  Sender: FDA-Public Use
  Company Number: GB-TEVA-623418ACC

PATIENT
  Sex: Female

DRUGS (12)
  1. AMITRIPTYLINE [Suspect]
     Active Substance: AMITRIPTYLINE
     Route: 048
  2. ATENOLOL. [Concomitant]
     Active Substance: ATENOLOL
  3. DOCUSATE [Concomitant]
     Active Substance: DOCUSATE
  4. ACIDEX [Concomitant]
     Active Substance: CALCIUM CARBONATE\SODIUM ALGINATE\SODIUM BICARBONATE
  5. MOVICOL [Concomitant]
     Active Substance: POLYETHYLENE GLYCOL 3350\POTASSIUM CHLORIDE\SODIUM BICARBONATE\SODIUM CHLORIDE
  6. HALOPERIDOL. [Suspect]
     Active Substance: HALOPERIDOL
  7. ATORVASTATIN [Concomitant]
     Active Substance: ATORVASTATIN
  8. RISPERIDONE. [Suspect]
     Active Substance: RISPERIDONE
     Dosage: 1000 MILLIGRAM DAILY;
     Route: 048
  9. CODEINE [Concomitant]
     Active Substance: CODEINE
  10. PIROXICAM. [Concomitant]
     Active Substance: PIROXICAM
  11. METFORMIN [Concomitant]
     Active Substance: METFORMIN HYDROCHLORIDE
  12. PARACETAMOL [Concomitant]
     Active Substance: ACETAMINOPHEN

REACTIONS (1)
  - Electrocardiogram QT prolonged [Recovered/Resolved]
